FAERS Safety Report 8589484-5 (Version None)
Quarter: 2012Q3

REPORT INFORMATION
  Report Type: 
  Country: None (occurrence: None)
  Receive Date: 20120813
  Receipt Date: 20120730
  Transmission Date: 20120928
  Serious: No
  Sender: FDA-Public Use
  Company Number: FI-JNJFOC-20120800120

PATIENT
  Age: 9 Decade
  Sex: Male

DRUGS (5)
  1. OXYCONTIN [Concomitant]
     Route: 065
  2. OXYCODONE HYDROCHLORIDE [Concomitant]
     Route: 065
  3. DURAGESIC-100 [Suspect]
     Indication: CANCER PAIN
  4. UNKNOWN MEDICATION [Concomitant]
     Route: 065
  5. DIABETES MEDICATION [Concomitant]
     Route: 065

REACTIONS (4)
  - PRODUCT QUALITY ISSUE [None]
  - PAIN [None]
  - WRONG TECHNIQUE IN DRUG USAGE PROCESS [None]
  - HYPERHIDROSIS [None]
